FAERS Safety Report 17904306 (Version 1)
Quarter: 2020Q2

REPORT INFORMATION
  Report Type: Spontaneous
  Country: FR (occurrence: FR)
  Receive Date: 20200617
  Receipt Date: 20200617
  Transmission Date: 20200714
  Serious: Yes (Hospitalization, Other)
  Sender: FDA-Public Use
  Company Number: FR-BRISTOL-MYERS SQUIBB COMPANY-BMS-2020-046991

PATIENT
  Age: 72 Year
  Sex: Male
  Weight: 96 kg

DRUGS (1)
  1. OPDIVO [Suspect]
     Active Substance: NIVOLUMAB
     Indication: LUNG ADENOCARCINOMA
     Dosage: UNK
     Route: 042
     Dates: start: 20160111, end: 20160125

REACTIONS (7)
  - Blood creatine phosphokinase increased [Recovering/Resolving]
  - Myalgia [Not Recovered/Not Resolved]
  - Myocarditis [Unknown]
  - Troponin increased [Recovering/Resolving]
  - Cardiac failure [Unknown]
  - Electrocardiogram abnormal [Unknown]
  - Myositis [Not Recovered/Not Resolved]

NARRATIVE: CASE EVENT DATE: 20160129
